FAERS Safety Report 11640312 (Version 1)
Quarter: 2015Q4

REPORT INFORMATION
  Report Type: Report from Study
  Country: FR (occurrence: FR)
  Receive Date: 20151019
  Receipt Date: 20151019
  Transmission Date: 20160304
  Serious: Yes (Life-Threatening, Other)
  Sender: FDA-Public Use
  Company Number: FR-GLAXOSMITHKLINE-FR2015GSK145723

PATIENT
  Age: 65 Year
  Sex: Male
  Weight: 85 kg

DRUGS (21)
  1. AXEPIM [Concomitant]
     Active Substance: CEFEPIME HYDROCHLORIDE
     Dosage: 3 G, QD
     Dates: start: 20100528, end: 20100603
  2. LASILIX [Suspect]
     Active Substance: FUROSEMIDE
     Dosage: 1 G, QD
     Dates: start: 20100602, end: 20100604
  3. HYDROXYCARBAMIDE [Concomitant]
     Active Substance: HYDROXYUREA
     Indication: LEUKOCYTOSIS
     Dosage: 3 G, UNK
     Route: 042
     Dates: start: 20100512, end: 20100512
  4. VORICONAZOLE. [Concomitant]
     Active Substance: VORICONAZOLE
     Indication: ANTIFUNGAL TREATMENT
     Dosage: 800 MG, UNK
     Route: 048
     Dates: start: 20100528, end: 20100531
  5. HYDROXYUREA. [Concomitant]
     Active Substance: HYDROXYUREA
     Indication: LEUKOCYTOSIS
  6. ACYCLOVIR. [Suspect]
     Active Substance: ACYCLOVIR
     Indication: ACUTE MYELOID LEUKAEMIA
     Dosage: 1200 MG, CYC
     Route: 042
     Dates: start: 20100521, end: 20100528
  7. GEMTUZUMAB OZOGAMICIN [Suspect]
     Active Substance: GEMTUZUMAB OZOGAMICIN
     Dosage: 5 MG, CYC
     Route: 042
     Dates: start: 20100512, end: 20100518
  8. AXEPIM [Concomitant]
     Active Substance: CEFEPIME HYDROCHLORIDE
     Dosage: 1 G, UNK
     Dates: start: 20100604, end: 20100606
  9. VORICONAZOLE. [Concomitant]
     Active Substance: VORICONAZOLE
     Dosage: 600 MG, UNK
     Dates: start: 20100601, end: 20100608
  10. CYTARABINE. [Suspect]
     Active Substance: CYTARABINE
     Dosage: 400 MG, UNK
     Dates: start: 20100512, end: 20100518
  11. CLAFORAN [Concomitant]
     Active Substance: CEFOTAXIME SODIUM
     Dosage: 6 G, UNK
     Route: 042
     Dates: start: 20100507, end: 20100513
  12. VORICONAZOLE. [Concomitant]
     Active Substance: VORICONAZOLE
     Dosage: 400 MG, UNK
     Dates: start: 20100609, end: 20100614
  13. AXEPIM [Concomitant]
     Active Substance: CEFEPIME HYDROCHLORIDE
     Indication: ANTIBIOTIC PROPHYLAXIS
     Dosage: 6 G, UNK
     Dates: start: 20100515, end: 20100527
  14. ALLOPURINOL. [Concomitant]
     Active Substance: ALLOPURINOL
  15. TAREG [Suspect]
     Active Substance: VALSARTAN
     Indication: HYPERTENSION
     Dosage: 40 MG, QD
     Route: 048
     Dates: end: 20100526
  16. AMBISOME [Suspect]
     Active Substance: AMPHOTERICIN B
     Indication: ANTIFUNGAL PROPHYLAXIS
     Dosage: 250 MG, UNK
     Route: 042
     Dates: start: 20100524, end: 20100526
  17. CEFOTAXIME [Concomitant]
     Active Substance: CEFOTAXIME SODIUM
     Dosage: UNK
     Dates: start: 20100507, end: 20100513
  18. DAUNORUBICIN [Suspect]
     Active Substance: DAUNORUBICIN
     Indication: ACUTE MYELOID LEUKAEMIA
     Dosage: 120 MG, UNK
     Route: 042
     Dates: start: 20100512, end: 20100514
  19. LINEZOLID. [Concomitant]
     Active Substance: LINEZOLID
     Dosage: 1200 MG, UNK
     Dates: start: 20100529, end: 20100603
  20. FILGRASTIM [Concomitant]
     Active Substance: FILGRASTIM
     Indication: BONE MARROW FAILURE
     Dosage: 48 UNK, UNK
     Route: 042
     Dates: start: 20100530, end: 20100605
  21. ESOMEPRAZOLE MAGNESIUM. [Concomitant]
     Active Substance: ESOMEPRAZOLE MAGNESIUM
     Indication: GASTROOESOPHAGEAL REFLUX DISEASE
     Dosage: 40 MG, UNK
     Route: 048
     Dates: start: 20100605, end: 20100613

REACTIONS (2)
  - Acute kidney injury [Recovered/Resolved]
  - Bronchopulmonary aspergillosis [Recovered/Resolved]

NARRATIVE: CASE EVENT DATE: 20100525
